FAERS Safety Report 18242942 (Version 1)
Quarter: 2020Q3

REPORT INFORMATION
  Report Type: Spontaneous
  Country: ES (occurrence: ES)
  Receive Date: 20200908
  Receipt Date: 20200908
  Transmission Date: 20201103
  Serious: Yes (Other)
  Sender: FDA-Public Use
  Company Number: ES-TEVA-2020-ES-1824620

PATIENT
  Age: 30 Year
  Sex: Male

DRUGS (7)
  1. CYANOCOBALAMIN. [Suspect]
     Active Substance: CYANOCOBALAMIN
     Indication: MYELOPATHY
     Route: 065
  2. S?ADENOSYLMETHIONINE SULFATE P?TOLUENESULFONATE [Suspect]
     Active Substance: ADEMETIONINE SULFATE TOSILATE
     Indication: MYELOPATHY
     Route: 065
  3. METHIONINE [Suspect]
     Active Substance: METHIONINE
     Indication: MYELOPATHY
     Route: 065
  4. FOLINIC ACID [Suspect]
     Active Substance: LEUCOVORIN
     Indication: MYELOPATHY
     Route: 065
  5. DEXTROMETHORPHAN [Suspect]
     Active Substance: DEXTROMETHORPHAN
     Indication: MYELOPATHY
     Route: 065
  6. METHOTREXATE. [Suspect]
     Active Substance: METHOTREXATE
     Indication: PROPHYLAXIS
     Route: 037
  7. CYTARABINE. [Concomitant]
     Active Substance: CYTARABINE
     Indication: PROPHYLAXIS
     Route: 037

REACTIONS (2)
  - Myelopathy [Unknown]
  - Drug ineffective [Unknown]
